FAERS Safety Report 7700338-6 (Version None)
Quarter: 2011Q3

REPORT INFORMATION
  Report Type: 
  Country: None (occurrence: None)
  Receive Date: 20110822
  Receipt Date: 20110816
  Transmission Date: 20111222
  Serious: Yes (Life-Threatening)
  Sender: FDA-Public Use
  Company Number: PHHY2011CA69345

PATIENT
  Sex: Female

DRUGS (7)
  1. PANTOPRAZOLE SODIUM [Concomitant]
     Dosage: UNK UKN, UNK
  2. ZOLEDRONOC ACID [Suspect]
     Indication: OSTEOPOROSIS
     Dosage: UNK UKN, UNK
     Route: 042
     Dates: start: 20100617
  3. FERROUS SULFATE TAB [Concomitant]
     Dosage: UNK UKN, UNK
  4. CALCIUM CARBONATE [Concomitant]
     Dosage: UNK UKN, UNK
  5. VITAMIN D [Concomitant]
     Dosage: UNK UKN, UNK
  6. VITAMIN B-12 [Concomitant]
     Dosage: UNK UKN, UNK
  7. ZOLEDRONOC ACID [Suspect]
     Dosage: UNK UKN, UNK
     Route: 042
     Dates: start: 20110727

REACTIONS (2)
  - ASTHENIA [None]
  - COLON CANCER STAGE II [None]
